FAERS Safety Report 6492947-X (Version None)
Quarter: 2009Q4

REPORT INFORMATION
  Report Type: 
  Country: None (occurrence: None)
  Receive Date: 20091214
  Receipt Date: 20091204
  Transmission Date: 20100525
  Serious: Yes (Other)
  Sender: FDA-Public Use
  Company Number: PHHY2009US54407

PATIENT
  Sex: Female

DRUGS (1)
  1. TEKTURNA [Suspect]
     Dosage: UNK

REACTIONS (2)
  - HYPERKALAEMIA [None]
  - RENAL ARTERY STENOSIS [None]
